FAERS Safety Report 13820821 (Version 1)
Quarter: 2017Q3

REPORT INFORMATION
  Report Type: Spontaneous
  Country: US (occurrence: US)
  Receive Date: 20170801
  Receipt Date: 20170801
  Transmission Date: 20171127
  Serious: No
  Sender: FDA-Public Use
  Company Number: US-009507513-1707USA010628

PATIENT
  Age: 33 Year
  Sex: Male

DRUGS (2)
  1. FAVIPIRAVIR [Concomitant]
     Active Substance: FAVIPIRAVIR
     Indication: LASSA FEVER
     Dosage: (DAYS 8-12 OF ILLNESS)
     Dates: start: 2016
  2. REBETOL [Suspect]
     Active Substance: RIBAVIRIN
     Indication: LASSA FEVER
     Dosage: (DAYS 6-15 OF ILLNESS)
     Route: 048
     Dates: start: 2016

REACTIONS (1)
  - Product use in unapproved indication [Unknown]

NARRATIVE: CASE EVENT DATE: 2016
